FAERS Safety Report 6607926-9 (Version None)
Quarter: 2010Q1

REPORT INFORMATION
  Report Type: 
  Country: None (occurrence: None)
  Receive Date: 20100212
  Receipt Date: 20091016
  Transmission Date: 20100710
  Serious: No
  Sender: FDA-Public Use
  Company Number: 1000009536

PATIENT
  Sex: Female

DRUGS (1)
  1. SAVELLA [Suspect]

REACTIONS (3)
  - ALOPECIA [None]
  - NAUSEA [None]
  - VISION BLURRED [None]
